FAERS Safety Report 9472958 (Version 2)
Quarter: 2013Q3

REPORT INFORMATION
  Report Type: Spontaneous
  Country: US (occurrence: US)
  Receive Date: 20130823
  Receipt Date: 20130823
  Transmission Date: 20140515
  Serious: Yes (Other)
  Sender: FDA-Public Use
  Company Number: US-BRISTOL-MYERS SQUIBB COMPANY-17282252

PATIENT
  Age: 6 Decade
  Sex: Female

DRUGS (2)
  1. SPRYCEL [Suspect]
     Dosage: INITIAL DOSE:100MG?20MG
  2. ADVAIR [Concomitant]

REACTIONS (3)
  - Malignant neoplasm progression [Unknown]
  - Sinusitis [Unknown]
  - Night sweats [Unknown]
